FAERS Safety Report 4706968-8 (Version None)
Quarter: 2005Q2

REPORT INFORMATION
  Report Type: 
  Country: None (occurrence: None)
  Receive Date: 20050630
  Receipt Date: 20050617
  Transmission Date: 20051028
  Serious: Yes (Other)
  Sender: FDA-Public Use
  Company Number: 2005089895

PATIENT
  Age: 47 Year
  Sex: Male
  Weight: 86.1834 kg

DRUGS (2)
  1. SUDAFED SEVERE COLD (PARACETAMOL, PSEUOEPHEDRINE, DEXTROMETHORPHAN) [Suspect]
     Indication: HYPERSENSITIVITY
     Dosage: 2 TABLETS ONCE, ORAL
     Route: 048
     Dates: start: 20050616, end: 20050616
  2. ATORVASTATIN CALCIUM [Concomitant]

REACTIONS (4)
  - AGGRESSION [None]
  - CHILD ABUSE [None]
  - IMPRISONMENT [None]
  - PHYSICAL ASSAULT [None]
